FAERS Safety Report 4477527-X (Version None)
Quarter: 2004Q4

REPORT INFORMATION
  Report Type: 
  Country: None (occurrence: None)
  Receive Date: 20041018
  Receipt Date: 20041005
  Transmission Date: 20050328
  Serious: Yes (Hospitalization)
  Sender: FDA-Public Use
  Company Number: 381653

PATIENT
  Age: 92 Year
  Sex: Male

DRUGS (5)
  1. KREDEX [Suspect]
     Indication: CARDIAC FAILURE
     Dosage: 6.25MG PER DAY
     Route: 048
     Dates: end: 20040802
  2. LASILIX [Suspect]
     Dosage: 40MG PER DAY
  3. ZESTRIL [Suspect]
     Indication: CARDIAC FAILURE
     Dosage: .5MG PER DAY
     Route: 048
  4. XANAX [Concomitant]
  5. PREVISCAN [Concomitant]

REACTIONS (14)
  - ABNORMAL CHEST SOUND [None]
  - ARRHYTHMIA [None]
  - ASTHENIA [None]
  - CONDITION AGGRAVATED [None]
  - DRUG INTERACTION [None]
  - FATIGUE [None]
  - HEART RATE DECREASED [None]
  - HEART SOUNDS ABNORMAL [None]
  - HYPERKALAEMIA [None]
  - HYPONATRAEMIA [None]
  - HYPOTENSION [None]
  - ILL-DEFINED DISORDER [None]
  - RENAL FAILURE [None]
  - SYNCOPE [None]
